FAERS Safety Report 4955197-1 (Version None)
Quarter: 2006Q1

REPORT INFORMATION
  Report Type: 
  Country: None (occurrence: None)
  Receive Date: 20060322
  Receipt Date: 20060311
  Transmission Date: 20060701
  Serious: Yes (Other)
  Sender: FDA-Public Use
  Company Number: 2006035189

PATIENT
  Age: 66 Year
  Sex: Female
  Weight: 62.5964 kg

DRUGS (7)
  1. LIPITOR [Suspect]
     Indication: BLOOD CHOLESTEROL INCREASED
     Dosage: 20 MG (20 MG, 1 IN 1 D), ORAL
     Route: 048
     Dates: start: 20030101
  2. ACTONEL [Concomitant]
  3. ROCALTROL [Concomitant]
  4. LEVOTHYROXINE SODIUM [Concomitant]
  5. HYDROCHLOROTHIAZIDE [Concomitant]
  6. LABETALOL HCL [Concomitant]
  7. CALCIUM GLUCONATE [Concomitant]

REACTIONS (6)
  - DIFFICULTY IN WALKING [None]
  - DIZZINESS [None]
  - INSOMNIA [None]
  - NOCTURNAL DYSPNOEA [None]
  - THYROID DISORDER [None]
  - VERTIGO [None]
